FAERS Safety Report 4848672-1 (Version None)
Quarter: 2005Q4

REPORT INFORMATION
  Report Type: 
  Country: None (occurrence: None)
  Receive Date: 20051206
  Receipt Date: 20051124
  Transmission Date: 20060501
  Serious: Yes (Death, Hospitalization)
  Sender: FDA-Public Use
  Company Number: EWC050845399

PATIENT
  Age: 71 Year
  Sex: Female

DRUGS (10)
  1. FORTEO [Suspect]
     Indication: OSTEOPOROSIS
     Dosage: 20 UG, DAILY (1/D)
     Dates: start: 20050425, end: 20050523
  2. METHOTREXAT /00113801/(METHOTREXATE) [Concomitant]
  3. CONTALGIN (MORPHINE SULFATE) [Concomitant]
  4. FUROSEMIDE [Concomitant]
  5. POTASSIUM CHLORIDE [Concomitant]
  6. HJERTEMAGNYL [Concomitant]
  7. HEXASOPTIN (VERAPAMIL0 [Concomitant]
  8. PANTOLOC (PANTALOC) [Concomitant]
  9. FOLINSYRE (FOLIC ACID) [Concomitant]
  10. FORTEO PEN, 250MCG/ML(3ML) (FORTEO PEN 250MCG/ML(3ML)) [Concomitant]

REACTIONS (4)
  - ASTHENIA [None]
  - DEEP VEIN THROMBOSIS [None]
  - PLEURAL EFFUSION [None]
  - PNEUMONIA [None]
